FAERS Safety Report 20411874 (Version 1)
Quarter: 2022Q1

REPORT INFORMATION
  Report Type: Report from Study
  Country: CA (occurrence: CA)
  Receive Date: 20220201
  Receipt Date: 20220201
  Transmission Date: 20220423
  Serious: Yes (Other)
  Sender: FDA-Public Use
  Company Number: CA-OTSUKA-2022_003306

PATIENT
  Age: 56 Year
  Sex: Male

DRUGS (2)
  1. TOLVAPTAN [Suspect]
     Active Substance: TOLVAPTAN
     Indication: Congenital cystic kidney disease
     Dosage: 45 MG, QD
     Route: 048
     Dates: start: 20160205
  2. TOLVAPTAN [Suspect]
     Active Substance: TOLVAPTAN
     Dosage: 15 MG, QD
     Route: 048
     Dates: start: 20160205

REACTIONS (13)
  - Blood creatinine increased [Unknown]
  - Gamma-glutamyltransferase increased [Unknown]
  - Kidney enlargement [Unknown]
  - Amylase increased [Unknown]
  - Blood alkaline phosphatase decreased [Unknown]
  - Blood bicarbonate decreased [Unknown]
  - Blood chloride increased [Unknown]
  - Lipase increased [Unknown]
  - Anxiety [Unknown]
  - Haematocrit decreased [Unknown]
  - Back pain [Unknown]
  - Blood urea increased [Unknown]
  - Blood uric acid increased [Unknown]

NARRATIVE: CASE EVENT DATE: 20220124
